FAERS Safety Report 5905477-8 (Version None)
Quarter: 2008Q4

REPORT INFORMATION
  Report Type: 
  Country: None (occurrence: None)
  Receive Date: 20081001
  Receipt Date: 20081001
  Transmission Date: 20090506
  Serious: Yes (Death)
  Sender: FDA-Public Use
  Company Number: None

PATIENT
  Sex: Male
  Weight: 84.8 kg

DRUGS (1)
  1. TAXOL [Suspect]
     Dosage: 364 MG
     Dates: end: 20071109

REACTIONS (1)
  - PERIPHERAL SENSORY NEUROPATHY [None]
